FAERS Safety Report 19941709 (Version 1)
Quarter: 2021Q4

REPORT INFORMATION
  Report Type: Spontaneous
  Country: JP (occurrence: JP)
  Receive Date: 20211011
  Receipt Date: 20211011
  Transmission Date: 20220303
  Serious: Yes (Death, Other)
  Sender: FDA-Public Use
  Company Number: JP-OTSUKA-2021_034637

PATIENT
  Age: 38 Year
  Sex: Male
  Weight: 71.8 kg

DRUGS (6)
  1. REXULTI [Suspect]
     Active Substance: BREXPIPRAZOLE
     Indication: Schizophrenia
     Dosage: 1 TABLET, QD
     Route: 048
     Dates: start: 201912, end: 20210910
  2. LIPITOR [Suspect]
     Active Substance: ATORVASTATIN CALCIUM
     Indication: Product used for unknown indication
     Dosage: UNK
     Route: 065
     Dates: start: 202103
  3. DANTRIUM [Suspect]
     Active Substance: DANTROLENE SODIUM
     Indication: Product used for unknown indication
     Dosage: 40 MG, QD
     Route: 042
     Dates: start: 20210910, end: 20210910
  4. DANTRIUM [Suspect]
     Active Substance: DANTROLENE SODIUM
     Dosage: 20 MG, QD
     Route: 042
     Dates: start: 20210910, end: 20210910
  5. DANTRIUM [Suspect]
     Active Substance: DANTROLENE SODIUM
     Dosage: 20 MG, BID
     Route: 042
     Dates: start: 20210911, end: 20210911
  6. DANTRIUM [Suspect]
     Active Substance: DANTROLENE SODIUM
     Dosage: 20 MG, QD
     Route: 042
     Dates: start: 20210912, end: 20210913

REACTIONS (4)
  - Disseminated intravascular coagulation [Unknown]
  - Hypoglycaemia [Unknown]
  - Liver disorder [Unknown]
  - Neuroleptic malignant syndrome [Fatal]

NARRATIVE: CASE EVENT DATE: 20210910
